FAERS Safety Report 8203944-8 (Version None)
Quarter: 2012Q1

REPORT INFORMATION
  Report Type: 
  Country: None (occurrence: None)
  Receive Date: 20120313
  Receipt Date: 20120307
  Transmission Date: 20120608
  Serious: Yes (Death)
  Sender: FDA-Public Use
  Company Number: US-SANOFI-AVENTIS-2012SA015641

PATIENT
  Age: 77 Year
  Sex: Female

DRUGS (1)
  1. PLAVIX [Suspect]
     Dates: start: 20070101

REACTIONS (1)
  - LUNG NEOPLASM MALIGNANT [None]
